FAERS Safety Report 15835712 (Version 2)
Quarter: 2019Q1

REPORT INFORMATION
  Report Type: Spontaneous
  Country: GB (occurrence: GB)
  Receive Date: 20190117
  Receipt Date: 20190129
  Transmission Date: 20190417
  Serious: Yes (Other)
  Sender: FDA-Public Use
  Company Number: GB-AUROBINDO-AUR-APL-2014-08319

PATIENT
  Age: 32 Year
  Sex: Female

DRUGS (3)
  1. METFORMIN 500MG [Suspect]
     Active Substance: METFORMIN HYDROCHLORIDE
     Dosage: 1 GRAM, QD, 1X/DAY A WEEK LATER
     Route: 065
  2. PROPESS [Concomitant]
     Active Substance: DINOPROSTONE
     Indication: LABOUR INDUCTION
     Dosage: UNK
     Route: 065
  3. METFORMIN 500MG [Suspect]
     Active Substance: METFORMIN HYDROCHLORIDE
     Indication: GESTATIONAL DIABETES
     Dosage: 500 MILLIGRAM, QD, 1X/DAY AT 31 WEEKS 6 DAYS
     Route: 065

REACTIONS (4)
  - Labour induction [Unknown]
  - Exposure during pregnancy [Recovered/Resolved]
  - Live birth [Unknown]
  - Ketoacidosis [Recovered/Resolved]
